FAERS Safety Report 4843966-8 (Version None)
Quarter: 2005Q4

REPORT INFORMATION
  Report Type: 
  Country: None (occurrence: None)
  Receive Date: 20051202
  Receipt Date: 20050112
  Transmission Date: 20060501
  Serious: Yes (Hospitalization, Other)
  Sender: FDA-Public Use
  Company Number: US-MERCK-0501USA01313

PATIENT
  Age: 52 Year
  Sex: Male
  Weight: 148 kg

DRUGS (4)
  1. VIOXX [Suspect]
     Route: 048
     Dates: start: 19990101
  2. LOTENSIN [Concomitant]
     Indication: HYPERTENSION
     Route: 065
     Dates: start: 19980101
  3. PERCOCET [Concomitant]
     Indication: ARTHRITIS
     Route: 065
  4. NITROGLYCERIN [Concomitant]
     Indication: CHEST PAIN
     Route: 065

REACTIONS (12)
  - ANGINA UNSTABLE [None]
  - CARDIAC FAILURE CONGESTIVE [None]
  - CHEST PAIN [None]
  - CHRONIC OBSTRUCTIVE PULMONARY DISEASE [None]
  - CORONARY ARTERY DISEASE [None]
  - DEHYDRATION [None]
  - DYSPNOEA [None]
  - GENERALISED OEDEMA [None]
  - HYPERTENSIVE CARDIOMYOPATHY [None]
  - HYPOKALAEMIA [None]
  - JOINT SPRAIN [None]
  - MYOCARDIAL INFARCTION [None]
